FAERS Safety Report 10137744 (Version 1)
Quarter: 2014Q2

REPORT INFORMATION
  Report Type: Spontaneous
  Country: US (occurrence: US)
  Receive Date: 20140429
  Receipt Date: 20140429
  Transmission Date: 20141212
  Serious: Yes (Other)
  Sender: FDA-Public Use
  Company Number: US-BAYER-2014-060015

PATIENT
  Age: 44 Year
  Sex: Female

DRUGS (4)
  1. YAZ [Suspect]
  2. YASMIN [Suspect]
  3. ARNICA [Concomitant]
  4. DALTEPARIN [Concomitant]

REACTIONS (2)
  - Deep vein thrombosis [None]
  - Deep vein thrombosis [Recovered/Resolved]
